FAERS Safety Report 14615240 (Version 1)
Quarter: 2018Q1

REPORT INFORMATION
  Report Type: Spontaneous
  Country: US (occurrence: US)
  Receive Date: 20180308
  Receipt Date: 20180308
  Transmission Date: 20180509
  Serious: No
  Sender: FDA-Public Use
  Company Number: US-ACTELION-A-NJ2018-168789

PATIENT
  Age: 5 Year
  Sex: Male

DRUGS (9)
  1. ZAVESCA [Suspect]
     Active Substance: MIGLUSTAT
     Indication: TAY-SACHS DISEASE
     Dosage: 70 MG, TID
     Route: 048
     Dates: start: 20170309
  2. MIRALAX [Concomitant]
     Active Substance: POLYETHYLENE GLYCOL 3350
     Dosage: 1 UNK, QD VIA G TUBE
     Dates: start: 20170224
  3. VITAMIN D3 [Concomitant]
     Active Substance: CHOLECALCIFEROL
     Dosage: 5 ML, QD VIA G TUBE
     Dates: start: 20170224
  4. BACLOFEN. [Concomitant]
     Active Substance: BACLOFEN
     Dosage: 1 ML, BID VIA G TUBE
     Dates: start: 20170224
  5. CANNABIDIOL [Concomitant]
     Active Substance: CANNABIDIOL
     Dosage: .25 ML, BID VIA G TUBE
     Dates: start: 20170224
  6. KEPPRA [Concomitant]
     Active Substance: LEVETIRACETAM
     Dosage: 2.8 ML, BID VIA G TUBE
     Dates: start: 20170224
  7. TRIAMCINOLONE [Concomitant]
     Active Substance: TRIAMCINOLONE
     Dosage: 1 APPLICATON AS DIRECTED
     Route: 061
     Dates: start: 20170224
  8. TRILEPTAL [Concomitant]
     Active Substance: OXCARBAZEPINE
     Dosage: 1.5 ML, BID
     Route: 048
     Dates: start: 20170224
  9. VITAMIN B-6 [Concomitant]
     Active Substance: PYRIDOXINE
     Dosage: 1 TAB, BID VIA G TUBE
     Dates: start: 20170224

REACTIONS (1)
  - Upper respiratory tract infection [Unknown]
